FAERS Safety Report 7709258-4 (Version None)
Quarter: 2011Q3

REPORT INFORMATION
  Report Type: 
  Country: None (occurrence: None)
  Receive Date: 20110819
  Receipt Date: 20110810
  Transmission Date: 20111222
  Serious: Yes (Hospitalization, Other)
  Sender: FDA-Public Use
  Company Number: 2010SP019044

PATIENT
  Age: 30 Year
  Sex: Female
  Weight: 77.1115 kg

DRUGS (1)
  1. NUVARING [Suspect]
     Indication: CONTRACEPTION
     Dates: start: 20040722, end: 20051001

REACTIONS (6)
  - PULMONARY EMBOLISM [None]
  - UNINTENDED PREGNANCY [None]
  - VULVOVAGINAL PRURITUS [None]
  - ANTEPARTUM HAEMORRHAGE [None]
  - ECTOPIC PREGNANCY [None]
  - RHINITIS ALLERGIC [None]
